FAERS Safety Report 9346943 (Version 2)
Quarter: 2013Q3

REPORT INFORMATION
  Report Type: Report from Study
  Country: JP (occurrence: JP)
  Receive Date: 20130613
  Receipt Date: 20130725
  Transmission Date: 20140515
  Serious: Yes (Hospitalization)
  Sender: FDA-Public Use
  Company Number: JP-JNJFOC-20130604844

PATIENT
  Age: 82 Year
  Sex: Male
  Weight: 55 kg

DRUGS (9)
  1. SIMPONI [Suspect]
     Indication: RHEUMATOID ARTHRITIS
     Route: 058
     Dates: start: 20120229
  2. PREDNISOLONE [Concomitant]
     Indication: RHEUMATOID ARTHRITIS
     Route: 048
  3. LOXONIN [Concomitant]
     Indication: RHEUMATOID ARTHRITIS
     Route: 048
  4. PARIET [Concomitant]
     Indication: PROPHYLAXIS
     Route: 048
  5. CYTOTEC [Concomitant]
     Indication: PROPHYLAXIS
     Route: 048
  6. REBAMIPIDE [Concomitant]
     Indication: PROPHYLAXIS
     Route: 048
  7. MYSLEE [Concomitant]
     Indication: INSOMNIA
     Route: 048
  8. BIOFERMIN [Concomitant]
     Indication: PROPHYLAXIS
     Route: 048
  9. CONSTAN [Concomitant]
     Indication: INSOMNIA
     Route: 048

REACTIONS (2)
  - C-reactive protein increased [Recovered/Resolved]
  - Drug effect incomplete [Unknown]
